FAERS Safety Report 22530173 (Version 1)
Quarter: 2023Q2

REPORT INFORMATION
  Report Type: Spontaneous
  Country: CA (occurrence: CA)
  Receive Date: 20230607
  Receipt Date: 20230607
  Transmission Date: 20230721
  Serious: Yes (Other)
  Sender: FDA-Public Use
  Company Number: CA-002147023-NVSC2023CA126998

PATIENT
  Age: 6 Year
  Sex: Male

DRUGS (3)
  1. RUXOLITINIB [Suspect]
     Active Substance: RUXOLITINIB
     Indication: Chronic graft versus host disease
     Dosage: 5 MG, BID
     Route: 065
  2. BASILIXIMAB [Suspect]
     Active Substance: BASILIXIMAB
     Indication: Chronic graft versus host disease
     Dosage: UNK
     Route: 065
  3. ETANERCEPT [Suspect]
     Active Substance: ETANERCEPT
     Indication: Chronic graft versus host disease
     Dosage: UNK
     Route: 065

REACTIONS (6)
  - Chronic graft versus host disease [Unknown]
  - Hypertransaminasaemia [Recovering/Resolving]
  - Graft versus host disease in liver [Unknown]
  - Graft versus host disease in skin [Unknown]
  - Iron overload [Unknown]
  - Drug ineffective [Unknown]
